FAERS Safety Report 5121708-9 (Version None)
Quarter: 2006Q4

REPORT INFORMATION
  Report Type: 
  Country: None (occurrence: None)
  Receive Date: 20061003
  Receipt Date: 20060918
  Transmission Date: 20070319
  Serious: Yes (Other)
  Sender: FDA-Public Use
  Company Number: FABR-11643

PATIENT
  Age: 44 Year
  Sex: Male
  Weight: 60 kg

DRUGS (1)
  1. FABRAZYME [Suspect]
     Indication: FABRY'S DISEASE
     Dosage: 60 MG Q2WKS; IV
     Route: 042
     Dates: start: 20060721

REACTIONS (3)
  - PERICARDITIS [None]
  - PLEURAL EFFUSION [None]
  - TREATMENT NONCOMPLIANCE [None]
